FAERS Safety Report 5942242-X (Version None)
Quarter: 2008Q4

REPORT INFORMATION
  Report Type: 
  Country: None (occurrence: None)
  Receive Date: 20081031
  Receipt Date: 20081022
  Transmission Date: 20090506
  Serious: Yes (Death)
  Sender: FDA-Public Use
  Company Number: SPV1-2008-02278

PATIENT
  Sex: Female

DRUGS (1)
  1. VYVANSE [Suspect]
     Dates: start: 20080101, end: 20080101

REACTIONS (2)
  - DRUG DIVERSION [None]
  - OVERDOSE [None]
